FAERS Safety Report 21247364 (Version 1)
Quarter: 2022Q3

REPORT INFORMATION
  Report Type: Spontaneous
  Country: US (occurrence: None)
  Receive Date: 20220824
  Receipt Date: 20220824
  Transmission Date: 20221027
  Serious: No
  Sender: FDA-Public Use
  Company Number: 2022A266923

PATIENT
  Sex: Female
  Weight: 80.3 kg

DRUGS (2)
  1. BYDUREON BCISE [Suspect]
     Active Substance: EXENATIDE
     Indication: Type 2 diabetes mellitus
     Route: 058
     Dates: start: 202206
  2. LISINOPRIL [Concomitant]
     Active Substance: LISINOPRIL

REACTIONS (6)
  - Blood pressure abnormal [Not Recovered/Not Resolved]
  - Energy increased [Not Recovered/Not Resolved]
  - Injection site mass [Recovered/Resolved]
  - Yellow nail syndrome [Not Recovered/Not Resolved]
  - Asthma [Not Recovered/Not Resolved]
  - Weight decreased [Not Recovered/Not Resolved]

NARRATIVE: CASE EVENT DATE: 20220101
